FAERS Safety Report 5788624-0 (Version None)
Quarter: 2008Q2

REPORT INFORMATION
  Report Type: 
  Country: None (occurrence: None)
  Receive Date: 20080625
  Receipt Date: 20080625
  Transmission Date: 20081010
  Serious: Yes (Other)
  Sender: FDA-Public Use
  Company Number: None

PATIENT
  Sex: Male
  Weight: 89.4947 kg

DRUGS (1)
  1. ZOLPIDEM TARTRATE [Suspect]
     Indication: INSOMNIA
     Dosage: 10 MG QHS PO
     Route: 048
     Dates: start: 20071201

REACTIONS (2)
  - NIGHTMARE [None]
  - PHARMACEUTICAL PRODUCT COMPLAINT [None]
